FAERS Safety Report 9494373 (Version 3)
Quarter: 2013Q3

REPORT INFORMATION
  Report Type: Spontaneous
  Country: US (occurrence: US)
  Receive Date: 20130903
  Receipt Date: 20130925
  Transmission Date: 20140515
  Serious: Yes (Other)
  Sender: FDA-Public Use
  Company Number: US-BAYER-2013-105588

PATIENT
  Age: 58 Year
  Sex: Male
  Weight: 77.1 kg

DRUGS (3)
  1. BAYER ADVANCED ASPIRIN EXTRA STRENGTH [Suspect]
     Indication: BACK PAIN
     Dosage: 2 DF, PRN
     Route: 048
     Dates: start: 201105
  2. ALEVE GELCAPS [Suspect]
     Indication: BACK PAIN
     Dosage: 2 DF, PRN
     Route: 048
     Dates: start: 2012, end: 2012
  3. ALMOTRIPTAN [Concomitant]

REACTIONS (4)
  - Oropharyngeal blistering [Recovered/Resolved]
  - Throat irritation [Recovered/Resolved]
  - Drug ineffective [None]
  - Expired drug administered [None]
